FAERS Safety Report 4650750-7 (Version None)
Quarter: 2005Q2

REPORT INFORMATION
  Report Type: 
  Country: None (occurrence: None)
  Receive Date: 20050503
  Receipt Date: 20050426
  Transmission Date: 20051028
  Serious: Yes (Other)
  Sender: FDA-Public Use
  Company Number: PHBS2005US06055

PATIENT
  Age: 40 Year
  Sex: Male

DRUGS (5)
  1. PREDNISONE [Concomitant]
     Indication: STEM CELL TRANSPLANT
     Dosage: 1 MG/KG/DAY
  2. HYDROCORTISONE [Concomitant]
     Dosage: 1 MG/KG/DAY
  3. ACYCLOVIR [Concomitant]
  4. ANTIFUNGAL DRUGS [Concomitant]
  5. CYCLOSPORINE [Suspect]
     Indication: STEM CELL TRANSPLANT
     Dosage: 1 MG/KG, QD

REACTIONS (13)
  - ALANINE AMINOTRANSFERASE INCREASED [None]
  - ASPARTATE AMINOTRANSFERASE INCREASED [None]
  - BLOOD ALKALINE PHOSPHATASE INCREASED [None]
  - ERYTHEMA MULTIFORME [None]
  - GRAFT VERSUS HOST DISEASE [None]
  - HEPATIC ENZYME ABNORMAL [None]
  - MILKER'S NODULES [None]
  - MOUTH ULCERATION [None]
  - MUCOSAL INFLAMMATION [None]
  - ORAL PAIN [None]
  - ORAL SOFT TISSUE DISORDER [None]
  - STOMATITIS [None]
  - VIRAL INFECTION [None]
